FAERS Safety Report 7116290-0 (Version None)
Quarter: 2010Q4

REPORT INFORMATION
  Report Type: 
  Country: None (occurrence: None)
  Receive Date: 20101122
  Receipt Date: 20101118
  Transmission Date: 20110411
  Serious: Yes (Life-Threatening, Hospitalization)
  Sender: FDA-Public Use
  Company Number: JP-PFIZER INC-2010138977

PATIENT
  Age: 71 Year
  Sex: Female
  Weight: 88 kg

DRUGS (9)
  1. ALDACTONE [Suspect]
     Dosage: 25 MG, 1X/DAY
     Route: 048
  2. AROMASIN [Suspect]
     Dosage: 25 MG, 1X/DAY
     Route: 048
  3. LIVACT [Suspect]
     Dosage: 4.15 G, 3X/DAY
     Route: 048
  4. TAURINE [Suspect]
     Dosage: 1.02 G, 3X/DAY
     Route: 048
  5. URSO [Suspect]
     Dosage: 200 MG, 3X/DAY
     Route: 048
  6. ALTAT [Suspect]
     Dosage: 75 MG, 1X/DAY
     Route: 048
  7. MYSLEE [Suspect]
     Dosage: 10 MG, 1X/DAY
     Route: 048
  8. ZOMETA [Suspect]
  9. ADOFEED [Concomitant]

REACTIONS (1)
  - NEUROLEPTIC MALIGNANT SYNDROME [None]
